FAERS Safety Report 7949951-1 (Version None)
Quarter: 2011Q4

REPORT INFORMATION
  Report Type: 
  Country: None (occurrence: None)
  Receive Date: 20111130
  Receipt Date: 20111122
  Transmission Date: 20120403
  Serious: Yes (Hospitalization)
  Sender: FDA-Public Use
  Company Number: ZA-BRISTOL-MYERS SQUIBB COMPANY-15126287

PATIENT
  Age: 19 Year
  Sex: Male

DRUGS (5)
  1. VALPROATE SODIUM [Concomitant]
     Dosage: EPILIM CR
     Dates: start: 20100506
  2. RISPERIDONE [Concomitant]
     Dates: start: 20100506
  3. ARIPIPRAZOLE [Suspect]
     Indication: BIPOLAR I DISORDER
     Route: 048
     Dates: start: 20100316, end: 20100505
  4. LITHIUM [Suspect]
     Indication: BIPOLAR I DISORDER
     Route: 048
     Dates: start: 20100122
  5. LORAZEPAM [Concomitant]
     Dates: start: 20100506

REACTIONS (1)
  - PSYCHOTIC DISORDER [None]
